FAERS Safety Report 9327931 (Version 2)
Quarter: 2013Q2

REPORT INFORMATION
  Report Type: Spontaneous
  Country: JP (occurrence: JP)
  Receive Date: 20130604
  Receipt Date: 20130604
  Transmission Date: 20140414
  Serious: Yes (Other)
  Sender: FDA-Public Use
  Company Number: JP-TEVA-401769ISR

PATIENT
  Age: 76 Year
  Sex: Female
  Weight: 43.6 kg

DRUGS (5)
  1. RANITIDINE HCL,TAB [Suspect]
     Indication: GASTRITIS
     Dosage: 150 MILLIGRAM DAILY;
     Route: 048
     Dates: start: 201301
  2. AMLODIPINE [Suspect]
     Dosage: 5 MILLIGRAM DAILY;
     Route: 048
     Dates: start: 201301
  3. CALCIUM L-ASPARTATE HYDRATE [Suspect]
     Dosage: 800 MILLIGRAM DAILY;
     Route: 048
     Dates: start: 201301
  4. BONOTEO [Suspect]
     Route: 048
  5. BROTIZOLAM [Suspect]
     Dosage: .125 MILLIGRAM DAILY;
     Dates: start: 201301

REACTIONS (4)
  - Liver disorder [Recovered/Resolved]
  - Drug-induced liver injury [None]
  - Biliary cirrhosis primary [None]
  - Autoimmune hepatitis [None]
